FAERS Safety Report 5826593-5 (Version None)
Quarter: 2008Q3

REPORT INFORMATION
  Report Type: 
  Country: None (occurrence: None)
  Receive Date: 20080728
  Receipt Date: 20080728
  Transmission Date: 20090109
  Serious: Yes (Life-Threatening, Other)
  Sender: FDA-Public Use
  Company Number: None

PATIENT
  Sex: Female
  Weight: 56.246 kg

DRUGS (1)
  1. CLARITIN [Suspect]
     Indication: ALLERGIC SINUSITIS
     Dosage: 10 MG 24 HOURS PO
     Route: 048
     Dates: start: 20080724, end: 20080724

REACTIONS (5)
  - ANGER [None]
  - CRYING [None]
  - DEPRESSION [None]
  - IRRITABILITY [None]
  - SUICIDAL IDEATION [None]
